FAERS Safety Report 12066803 (Version 2)
Quarter: 2016Q1

REPORT INFORMATION
  Report Type: Report from Study
  Country: DE (occurrence: DE)
  Receive Date: 20160211
  Receipt Date: 20160215
  Transmission Date: 20160526
  Serious: Yes (Hospitalization, Other)
  Sender: FDA-Public Use
  Company Number: PHHY2016DE017176

PATIENT
  Sex: Female
  Weight: 50 kg

DRUGS (9)
  1. EXELON PATCH [Suspect]
     Active Substance: RIVASTIGMINE
     Indication: DEMENTIA ALZHEIMER^S TYPE
     Dosage: PATCH 5 (CM2)
     Route: 062
     Dates: start: 20151217
  2. EXELON PATCH [Suspect]
     Active Substance: RIVASTIGMINE
     Dosage: PATCH 10 (CM2)
     Route: 062
  3. METOHEXAL [Concomitant]
     Active Substance: METOPROLOL SUCCINATE
     Indication: HYPERTENSION
     Dosage: 47.5 MG, QD
     Route: 048
     Dates: start: 20140409
  4. ATORVASTATIN [Concomitant]
     Active Substance: ATORVASTATIN
     Indication: HYPERCHOLESTEROLAEMIA
     Dosage: 40 MG, QD
     Route: 048
     Dates: start: 20140409
  5. L-THYROXINE [Concomitant]
     Active Substance: LEVOTHYROXINE
     Indication: HYPOTHYROIDISM
     Dosage: 50 UG, QD
     Route: 048
     Dates: start: 20140409
  6. LISINOPRIL. [Concomitant]
     Active Substance: LISINOPRIL
     Indication: HYPERTENSION
     Dosage: 20 MG, QD
     Route: 048
     Dates: start: 20140409
  7. PROPIVERINE [Concomitant]
     Active Substance: PROPIVERINE
     Indication: URINARY INCONTINENCE
     Dosage: 15 MG, QD
     Route: 048
     Dates: start: 20140409
  8. HERZASS [Concomitant]
     Indication: PROPHYLAXIS
     Dosage: 100 MG, QD
     Route: 048
     Dates: start: 20140409
  9. TEVABONE [Concomitant]
     Indication: OSTEOPOROSIS
     Dosage: 70 MG, QW
     Route: 048
     Dates: start: 20140409

REACTIONS (6)
  - Dizziness [Recovered/Resolved]
  - Nausea [Recovered/Resolved]
  - Tremor [Recovered/Resolved]
  - Anaemia [Recovering/Resolving]
  - Dehydration [Recovered/Resolved]
  - Encephalopathy [Not Recovered/Not Resolved]

NARRATIVE: CASE EVENT DATE: 20160121
